FAERS Safety Report 17143277 (Version 1)
Quarter: 2019Q4

REPORT INFORMATION
  Report Type: Spontaneous
  Country: US (occurrence: US)
  Receive Date: 20191211
  Receipt Date: 20191211
  Transmission Date: 20200122
  Serious: Yes (Hospitalization)
  Sender: FDA-Public Use
  Company Number: US-AMERICAN REGENT INC-20190099

PATIENT
  Age: 14 Year
  Sex: Female

DRUGS (8)
  1. VENOFER [Suspect]
     Active Substance: IRON SUCROSE
  2. TRANEXAMIC ACID. [Concomitant]
     Active Substance: TRANEXAMIC ACID
     Indication: HAEMORRHAGE
     Dosage: 1300 MG TID PRN
     Route: 048
  3. CELECOXIB. [Concomitant]
     Active Substance: CELECOXIB
     Indication: DYSMENORRHOEA
     Dosage: 100 MG TWICE DAILY PRN
     Route: 065
  4. DESMOPRESSIN [Concomitant]
     Active Substance: DESMOPRESSIN
     Indication: HAEMORRHAGE
     Dosage: 1 SPRAY IN EACH NOSTRIL Q 24 H FOR MAX OF 3 DAYS PRN
     Route: 045
  5. VENOFER [Suspect]
     Active Substance: IRON SUCROSE
  6. IRON POLYSACCHARIDE [Concomitant]
     Indication: IRON DEFICIENCY
     Dosage: 150 MG TWICE DAILY
     Route: 048
  7. VENOFER [Suspect]
     Active Substance: IRON SUCROSE
     Dosage: 300 MG/ 100 NS ML(7MG/KG) INFUSED OVER 60 MINUTES
     Route: 042
     Dates: start: 20190108, end: 20190108
  8. ETHINYL ESTRADIOL AND LEVONORGESTREL [Concomitant]
     Active Substance: ETHINYL ESTRADIOL\LEVONORGESTREL
     Dosage: 300 MCG/0.15 MG DAILY
     Route: 048

REACTIONS (14)
  - Abdominal pain [Recovered/Resolved]
  - Skin discolouration [Recovered/Resolved]
  - Dyspnoea [Recovered/Resolved]
  - Hypoaesthesia [Recovered/Resolved]
  - Serum ferritin decreased [Unknown]
  - Oxygen saturation decreased [Recovered/Resolved]
  - Musculoskeletal disorder [Recovered/Resolved]
  - Incorrect dose administered [Unknown]
  - Haemoglobin decreased [Unknown]
  - Vomiting [Recovered/Resolved]
  - Syncope [Recovered/Resolved]
  - Product preparation issue [Unknown]
  - Hypotension [Recovered/Resolved]
  - Product use in unapproved indication [Unknown]

NARRATIVE: CASE EVENT DATE: 2019
